FAERS Safety Report 6039115-3 (Version None)
Quarter: 2009Q1

REPORT INFORMATION
  Report Type: 
  Country: None (occurrence: None)
  Receive Date: 20090115
  Receipt Date: 20090102
  Transmission Date: 20090719
  Serious: Yes (Life-Threatening, Other)
  Sender: FDA-Public Use
  Company Number: GB-PFIZER INC-2008157659

PATIENT
  Age: 50 Year
  Sex: Female

DRUGS (1)
  1. CHAMPIX [Suspect]
     Indication: SMOKING CESSATION THERAPY
     Dosage: UNK
     Route: 048

REACTIONS (9)
  - ABNORMAL BEHAVIOUR [None]
  - ANXIETY [None]
  - DYSPHAGIA [None]
  - EMOTIONAL DISTRESS [None]
  - FEAR OF DISEASE [None]
  - FEELING ABNORMAL [None]
  - MALAISE [None]
  - MORBID THOUGHTS [None]
  - SUICIDAL IDEATION [None]
